FAERS Safety Report 5568516-2 (Version None)
Quarter: 2007Q4

REPORT INFORMATION
  Report Type: 
  Country: None (occurrence: None)
  Receive Date: 20071220
  Receipt Date: 20071212
  Transmission Date: 20080405
  Serious: Yes (Other)
  Sender: FDA-Public Use
  Company Number: BR-ROCHE-536998

PATIENT
  Age: 20 Year
  Sex: Female

DRUGS (2)
  1. ROACUTAN [Suspect]
     Indication: ACNE
     Dosage: STRENGTH REPORTED: 10 MG
     Route: 048
     Dates: start: 20070301, end: 20070501
  2. ROACUTAN [Suspect]
     Dosage: STRENGTH REPORTED: 20 MG. DOSE INCREASED.
     Route: 048
     Dates: start: 20070501, end: 20071101

REACTIONS (2)
  - NO ADVERSE EVENT [None]
  - PREGNANCY [None]
